FAERS Safety Report 7674468-1 (Version None)
Quarter: 2011Q3

REPORT INFORMATION
  Report Type: 
  Country: None (occurrence: None)
  Receive Date: 20110810
  Receipt Date: 20110801
  Transmission Date: 20111222
  Serious: Yes (Other)
  Sender: FDA-Public Use
  Company Number: US-ROCHE-649309

PATIENT
  Sex: Male
  Weight: 70.3 kg

DRUGS (4)
  1. ACCUTANE [Suspect]
     Indication: ACNE
     Route: 048
     Dates: start: 19830405, end: 19830509
  2. ACCUTANE [Suspect]
     Route: 048
     Dates: start: 19830623, end: 19830905
  3. ACCUTANE [Suspect]
     Route: 048
     Dates: start: 20030510, end: 20030622
  4. ACCUTANE [Suspect]
     Route: 048
     Dates: start: 19830906, end: 19831024

REACTIONS (12)
  - EYE HAEMORRHAGE [None]
  - DRY SKIN [None]
  - EPISTAXIS [None]
  - DEPRESSION [None]
  - NEPHROLITHIASIS [None]
  - ANAL FISSURE [None]
  - ALOPECIA [None]
  - EYE IRRITATION [None]
  - INFLAMMATORY BOWEL DISEASE [None]
  - OCULAR HYPERAEMIA [None]
  - BLOOD TRIGLYCERIDES INCREASED [None]
  - CROHN'S DISEASE [None]
